FAERS Safety Report 17698759 (Version 1)
Quarter: 2020Q2

REPORT INFORMATION
  Report Type: Spontaneous
  Country: CA (occurrence: CA)
  Receive Date: 20200423
  Receipt Date: 20200423
  Transmission Date: 20200714
  Serious: Yes (Other)
  Sender: FDA-Public Use
  Company Number: CA-009507513-1506CAN003343

PATIENT
  Sex: Male
  Weight: 107.1 kg

DRUGS (20)
  1. BENADRYL [Concomitant]
     Active Substance: DIPHENHYDRAMINE HYDROCHLORIDE
     Dosage: 500 MG Q4H PRN
     Route: 065
  2. PERDIEM OVERNIGHT RELIEF TABLETS [Concomitant]
     Dosage: UNK
     Route: 065
  3. BIO-K PLUS [Concomitant]
     Dosage: OD FOR 12 DAYS
     Route: 065
  4. HYDROCHLOROTHIAZIDE. [Concomitant]
     Active Substance: HYDROCHLOROTHIAZIDE
     Dosage: 25 MG OD
     Route: 065
  5. TYLENOL EXTRA STRENGTH [Concomitant]
     Active Substance: ACETAMINOPHEN
     Dosage: TID PRN
     Route: 065
  6. BIO K PLUS CAPSULES [Concomitant]
     Dosage: BIO K PLUS CL1285
     Route: 065
  7. VIAGRA [Concomitant]
     Active Substance: SILDENAFIL CITRATE
     Dosage: 50 MG AS DIRECTED
     Route: 065
  8. PRAVASTATIN SODIUM. [Concomitant]
     Active Substance: PRAVASTATIN SODIUM
     Dosage: 40 MG OD
     Route: 065
  9. NOVORAPID [Concomitant]
     Active Substance: INSULIN ASPART
     Dosage: UNK
     Route: 065
  10. INFLUENZA VIRUS [Concomitant]
     Active Substance: INFLUENZA VIRUS VACCINE
     Indication: PROPHYLAXIS
     Dosage: UNK
     Route: 065
     Dates: start: 20141014
  11. STERILE DILUENT (WATER) [Suspect]
     Active Substance: WATER
     Dosage: UNK
     Route: 058
     Dates: start: 20141027
  12. KEFLEX [Concomitant]
     Active Substance: CEPHALEXIN
     Dosage: 500 MG QID (DAY 5 OF 7)
     Route: 065
  13. ZOSTAVAX [Suspect]
     Active Substance: VARICELLA-ZOSTER VIRUS STRAIN OKA/MERCK LIVE ANTIGEN
     Indication: IMMUNISATION
     Route: 058
     Dates: start: 20141027
  14. CIALIS [Concomitant]
     Active Substance: TADALAFIL
     Dosage: 20 MG AS DIRECTED
     Route: 065
  15. LOSEC [Concomitant]
     Active Substance: OMEPRAZOLE
     Dosage: 20 MG OD
     Route: 065
  16. METFORMIN [Concomitant]
     Active Substance: METFORMIN HYDROCHLORIDE
     Dosage: 500 MG  BID
     Route: 065
  17. ZESTRIL [Concomitant]
     Active Substance: LISINOPRIL
     Dosage: 40 MG OD (INCREASED DOSE)
     Route: 065
  18. PNEUMOVAX 23 [Concomitant]
     Active Substance: PNEUMOCOCCAL VACCINE, POLYVALENT 23
     Indication: PROPHYLAXIS
     Route: 065
     Dates: start: 20141014
  19. PRODIEM PLAIN [Concomitant]
     Dosage: TID
     Route: 065
  20. LANTUS [Concomitant]
     Active Substance: INSULIN GLARGINE
     Dosage: 66U QHS
     Route: 065

REACTIONS (4)
  - Cellulitis [Unknown]
  - Pyrexia [Unknown]
  - Rash erythematous [Unknown]
  - Peripheral swelling [Unknown]

NARRATIVE: CASE EVENT DATE: 20141029
